FAERS Safety Report 17254900 (Version 1)
Quarter: 2020Q1

REPORT INFORMATION
  Report Type: Spontaneous
  Country: US (occurrence: US)
  Receive Date: 20200109
  Receipt Date: 20200109
  Transmission Date: 20200409
  Serious: No
  Sender: FDA-Public Use
  Company Number: US-CHILTERN-US-2019-000905

PATIENT

DRUGS (1)
  1. ROCKLATAN [Suspect]
     Active Substance: LATANOPROST\NETARSUDIL MESYLATE
     Indication: GLAUCOMA
     Dosage: 2 GTT  IN BOTH EYES AT BEDTIME, QD
     Route: 047
     Dates: start: 201909

REACTIONS (5)
  - Lacrimation increased [Not Recovered/Not Resolved]
  - Muscular weakness [Not Recovered/Not Resolved]
  - Intraocular pressure increased [Unknown]
  - Dysphonia [Unknown]
  - Scleral discolouration [Not Recovered/Not Resolved]
